FAERS Safety Report 23228892 (Version 1)
Quarter: 2023Q4

REPORT INFORMATION
  Report Type: Spontaneous
  Country: US (occurrence: None)
  Receive Date: 20231126
  Receipt Date: 20231126
  Transmission Date: 20240110
  Serious: No
  Sender: FDA-Public Use
  Company Number: US-ROCHE-3251371

PATIENT

DRUGS (1)
  1. HERCEPTIN [Suspect]
     Active Substance: TRASTUZUMAB
     Indication: HER2 positive breast cancer
     Dosage: UNKNOWN
     Route: 041
     Dates: start: 2019

REACTIONS (4)
  - Thinking abnormal [Unknown]
  - Alopecia [Unknown]
  - Hypoaesthesia [Unknown]
  - Vomiting [Unknown]
